FAERS Safety Report 8328880-8 (Version None)
Quarter: 2012Q2

REPORT INFORMATION
  Report Type: 
  Country: None (occurrence: None)
  Receive Date: 20120502
  Receipt Date: 20120425
  Transmission Date: 20120825
  Serious: Yes (Other)
  Sender: FDA-Public Use
  Company Number: US-BAYER-2011-054472

PATIENT
  Age: 30 Year
  Sex: Female
  Weight: 49.887 kg

DRUGS (2)
  1. MIRENA [Suspect]
     Indication: CONTRACEPTION
     Dosage: 20 MCG/24HR, CONT
     Route: 015
     Dates: start: 20110519, end: 20110527
  2. MIRENA [Suspect]
     Dosage: 20 MCG/24HR, CONT
     Route: 015

REACTIONS (3)
  - DEVICE DISLOCATION [None]
  - DEVICE DEPLOYMENT ISSUE [None]
  - PAIN [None]
